FAERS Safety Report 11040688 (Version 2)
Quarter: 2015Q2

REPORT INFORMATION
  Report Type: Spontaneous
  Country: US (occurrence: US)
  Receive Date: 20150416
  Receipt Date: 20150525
  Transmission Date: 20150821
  Serious: No
  Sender: FDA-Public Use
  Company Number: US-JNJFOC-20140316183

PATIENT
  Sex: Female

DRUGS (15)
  1. XARELTO [Suspect]
     Active Substance: RIVAROXABAN
     Indication: THROMBOSIS
     Route: 048
     Dates: start: 20140316
  2. XARELTO [Suspect]
     Active Substance: RIVAROXABAN
     Indication: ANXIETY
     Route: 048
     Dates: start: 20140316
  3. XARELTO [Suspect]
     Active Substance: RIVAROXABAN
     Indication: INSOMNIA
     Route: 048
  4. XARELTO [Suspect]
     Active Substance: RIVAROXABAN
     Indication: THROMBOSIS
     Route: 048
     Dates: end: 20140311
  5. XARELTO [Suspect]
     Active Substance: RIVAROXABAN
     Indication: ANXIETY
     Route: 048
     Dates: end: 20140311
  6. XARELTO [Suspect]
     Active Substance: RIVAROXABAN
     Indication: MALAISE
     Route: 048
  7. XARELTO [Suspect]
     Active Substance: RIVAROXABAN
     Indication: THROMBOSIS
     Route: 048
  8. XARELTO [Suspect]
     Active Substance: RIVAROXABAN
     Indication: PULMONARY THROMBOSIS
     Route: 048
  9. XARELTO [Suspect]
     Active Substance: RIVAROXABAN
     Indication: ANXIETY
     Route: 048
  10. XARELTO [Suspect]
     Active Substance: RIVAROXABAN
     Indication: INSOMNIA
     Route: 048
     Dates: end: 20140311
  11. XARELTO [Suspect]
     Active Substance: RIVAROXABAN
     Indication: PULMONARY THROMBOSIS
     Route: 048
     Dates: start: 20140316
  12. XARELTO [Suspect]
     Active Substance: RIVAROXABAN
     Indication: MALAISE
     Route: 048
     Dates: start: 20140316
  13. XARELTO [Suspect]
     Active Substance: RIVAROXABAN
     Indication: PULMONARY THROMBOSIS
     Route: 048
     Dates: end: 20140311
  14. XARELTO [Suspect]
     Active Substance: RIVAROXABAN
     Indication: MALAISE
     Route: 048
     Dates: end: 20140311
  15. XARELTO [Suspect]
     Active Substance: RIVAROXABAN
     Indication: INSOMNIA
     Route: 048
     Dates: start: 20140316

REACTIONS (6)
  - Therapeutic response unexpected [Unknown]
  - Paraesthesia [Unknown]
  - Incorrect dose administered [Unknown]
  - Anxiety [Unknown]
  - Off label use [Unknown]
  - Burning sensation [Unknown]
